FAERS Safety Report 15012993 (Version 1)
Quarter: 2018Q2

REPORT INFORMATION
  Report Type: Spontaneous
  Country: US (occurrence: US)
  Receive Date: 20180522
  Receipt Date: 20180522
  Transmission Date: 20180711
  Serious: No
  Sender: FDA-Public Use
  Company Number: None

PATIENT
  Age: 70 Year
  Sex: Male

DRUGS (7)
  1. GLATIRAMER, 40MG/ML [Suspect]
     Active Substance: GLATIRAMER
     Indication: MULTIPLE SCLEROSIS
     Route: 058
     Dates: start: 20180321
  2. PREDNISONE. [Concomitant]
     Active Substance: PREDNISONE
  3. CARVEDILOL. [Concomitant]
     Active Substance: CARVEDILOL
  4. ATORVASTATIN [Concomitant]
     Active Substance: ATORVASTATIN
  5. AMLODIPINE [Concomitant]
     Active Substance: AMLODIPINE BESYLATE
  6. TAMSULOSIN [Concomitant]
     Active Substance: TAMSULOSIN
  7. AMANTADINE. [Concomitant]
     Active Substance: AMANTADINE HYDROCHLORIDE

REACTIONS (2)
  - Pneumothorax [None]
  - Cerebral haemorrhage [None]
